FAERS Safety Report 9444826 (Version 1)
Quarter: 2013Q3

REPORT INFORMATION
  Report Type: Report from Study
  Country: DE (occurrence: DE)
  Receive Date: 20130807
  Receipt Date: 20130807
  Transmission Date: 20140515
  Serious: Yes (Hospitalization, Other)
  Sender: FDA-Public Use
  Company Number: DE-JNJFOC-20130718236

PATIENT
  Age: 55 Year
  Sex: Female

DRUGS (5)
  1. SIMPONI [Suspect]
     Indication: RHEUMATOID ARTHRITIS
     Route: 058
     Dates: start: 201108, end: 201205
  2. METHOTREXATE [Concomitant]
     Route: 065
     Dates: start: 20111201
  3. METHOTREXATE [Concomitant]
     Route: 065
     Dates: start: 20110825
  4. METHOTREXATE [Concomitant]
     Route: 065
     Dates: start: 20120223
  5. METHOTREXATE [Concomitant]
     Route: 065
     Dates: start: 20121212

REACTIONS (4)
  - Knee arthroplasty [Recovered/Resolved]
  - Lower limb fracture [Unknown]
  - Alopecia [Unknown]
  - Gingival bleeding [Unknown]
